FAERS Safety Report 11885736 (Version 3)
Quarter: 2016Q2

REPORT INFORMATION
  Report Type: Spontaneous
  Country: US (occurrence: US)
  Receive Date: 20160104
  Receipt Date: 20160408
  Transmission Date: 20160815
  Serious: Yes (Hospitalization)
  Sender: FDA-Public Use
  Company Number: US-SA-2015SA222803

PATIENT
  Age: 65 Year
  Sex: Male

DRUGS (42)
  1. NITROSTAT [Concomitant]
     Active Substance: NITROGLYCERIN
     Dates: start: 2003
  2. GLYBURIDE. [Concomitant]
     Active Substance: GLYBURIDE
     Dates: start: 20140214
  3. INSULIN DETEMIR [Concomitant]
     Active Substance: INSULIN DETEMIR
     Dates: start: 20140228
  4. FUROSEMIDE. [Concomitant]
     Active Substance: FUROSEMIDE
     Dates: start: 2007
  5. TRAMADOL. [Concomitant]
     Active Substance: TRAMADOL
     Dates: start: 2007
  6. ALLOPURINOL. [Concomitant]
     Active Substance: ALLOPURINOL
     Dates: start: 2007
  7. HYDRALAZINE [Concomitant]
     Active Substance: HYDRALAZINE HYDROCHLORIDE
     Dates: start: 20150408, end: 20150409
  8. TYLENOL [Concomitant]
     Active Substance: ACETAMINOPHEN
     Dates: start: 20140228
  9. INSULIN LISPRO [Concomitant]
     Active Substance: INSULIN LISPRO
     Dates: start: 20140228
  10. DILAUDID [Concomitant]
     Active Substance: HYDROMORPHONE HYDROCHLORIDE
     Dates: start: 20151226
  11. LABETALOL [Concomitant]
     Active Substance: LABETALOL\LABETALOL HYDROCHLORIDE
     Dates: start: 20150408, end: 20150409
  12. EFFIENT [Concomitant]
     Active Substance: PRASUGREL HYDROCHLORIDE
     Dates: start: 2011
  13. POTASSIUM CHLORIDE. [Concomitant]
     Active Substance: POTASSIUM CHLORIDE
     Dates: start: 20131124
  14. PROCRIT [Concomitant]
     Active Substance: ERYTHROPOIETIN
     Dates: start: 20140228
  15. VITAMIN D2 [Concomitant]
     Active Substance: ERGOCALCIFEROL
     Dates: start: 20140228
  16. GLUCAGON. [Concomitant]
     Active Substance: GLUCAGON
     Dates: start: 20140228
  17. GABAPENTIN. [Concomitant]
     Active Substance: GABAPENTIN
     Dates: start: 20140524
  18. LASIX [Concomitant]
     Active Substance: FUROSEMIDE
     Dates: start: 20150408, end: 20150409
  19. PROTONIX [Concomitant]
     Active Substance: PANTOPRAZOLE SODIUM
  20. HYDROCODONE [Concomitant]
     Active Substance: HYDROCODONE
     Dates: start: 1981
  21. HYDRALAZINE [Concomitant]
     Active Substance: HYDRALAZINE HYDROCHLORIDE
     Dates: start: 20131223
  22. ISOSORBIDE MONONITRATE. [Concomitant]
     Active Substance: ISOSORBIDE MONONITRATE
     Dates: start: 20131223
  23. ALBUTEROL. [Concomitant]
     Active Substance: ALBUTEROL
     Dates: start: 20140122
  24. SEROQUEL [Concomitant]
     Active Substance: QUETIAPINE FUMARATE
     Dates: start: 20140228
  25. GUAIFENESIN. [Concomitant]
     Active Substance: GUAIFENESIN
     Dates: start: 20140228
  26. HYOSCYAMINE. [Concomitant]
     Active Substance: HYOSCYAMINE
     Dates: start: 20140524
  27. COLCHICINE. [Concomitant]
     Active Substance: COLCHICINE
     Dates: start: 20141111, end: 20141111
  28. LYRICA [Concomitant]
     Active Substance: PREGABALIN
     Dates: start: 20150720
  29. METOPROLOL TARTRATE. [Concomitant]
     Active Substance: METOPROLOL TARTRATE
     Dates: start: 2007
  30. GLIMEPIRIDE. [Concomitant]
     Active Substance: GLIMEPIRIDE
     Dates: start: 2007
  31. ALBUTEROL. [Concomitant]
     Active Substance: ALBUTEROL
     Dates: start: 20151226, end: 20151228
  32. ROBAXIN [Concomitant]
     Active Substance: METHOCARBAMOL
     Dates: start: 20140505
  33. PLAVIX [Suspect]
     Active Substance: CLOPIDOGREL BISULFATE
     Route: 065
     Dates: end: 20150920
  34. MORPHINE [Concomitant]
     Active Substance: MORPHINE
  35. NYSTATIN. [Concomitant]
     Active Substance: NYSTATIN
     Dates: start: 20150714, end: 20150716
  36. DIOVAN [Concomitant]
     Active Substance: VALSARTAN
     Dates: start: 20130321
  37. RANOLAZINE [Concomitant]
     Active Substance: RANOLAZINE
     Dates: start: 20140120
  38. LISINOPRIL. [Concomitant]
     Active Substance: LISINOPRIL
     Dates: start: 20140214
  39. NEXIUM [Concomitant]
     Active Substance: ESOMEPRAZOLE MAGNESIUM
  40. ASPIRIN. [Concomitant]
     Active Substance: ASPIRIN
     Dates: start: 2003
  41. COLCHICINE. [Concomitant]
     Active Substance: COLCHICINE
     Dates: start: 20140619
  42. LACTOBACILLUS [Concomitant]
     Active Substance: LACTOBACILLUS ACIDOPHILUS
     Dates: start: 20140228

REACTIONS (1)
  - Dyspnoea [Recovered/Resolved]

NARRATIVE: CASE EVENT DATE: 20150920
